FAERS Safety Report 7875847-X (Version None)
Quarter: 2011Q4

REPORT INFORMATION
  Report Type: 
  Country: None (occurrence: None)
  Receive Date: 20111031
  Receipt Date: 20111020
  Transmission Date: 20120403
  Serious: Yes (Hospitalization, Other)
  Sender: FDA-Public Use
  Company Number: PHHY2011JP93273

PATIENT
  Age: 68 Year
  Sex: Female
  Weight: 43 kg

DRUGS (5)
  1. DICLOFENAC SODIUM [Suspect]
     Indication: PAIN IN EXTREMITY
     Dosage: 100 MG, DAILY
     Route: 048
     Dates: start: 19560101, end: 19850101
  2. DICLOFENAC SODIUM [Suspect]
     Dosage: 100 MG, DAILY
     Route: 048
     Dates: end: 19951001
  3. DICLOFENAC SODIUM [Suspect]
     Dosage: 500 MG, DAILY
     Route: 048
     Dates: start: 19850101, end: 19850101
  4. DICLOFENAC SODIUM [Suspect]
     Dosage: 100 MG, DAILY
     Route: 048
  5. DICLOFENAC SODIUM [Suspect]
     Dosage: 500 MG, DAILY
     Route: 048
     Dates: start: 19951001, end: 19951001

REACTIONS (17)
  - BACTERIAL TEST POSITIVE [None]
  - BLOOD ALKALINE PHOSPHATASE INCREASED [None]
  - RED BLOOD CELLS URINE POSITIVE [None]
  - WHITE BLOOD CELLS URINE POSITIVE [None]
  - BLOOD URINE PRESENT [None]
  - HAEMOGLOBIN DECREASED [None]
  - HAEMATOCRIT DECREASED [None]
  - WHITE BLOOD CELL COUNT INCREASED [None]
  - URINARY CASTS PRESENT [None]
  - BLOOD ALBUMIN DECREASED [None]
  - BLOOD CREATININE INCREASED [None]
  - RENAL FAILURE ACUTE [None]
  - PYELONEPHRITIS CHRONIC [None]
  - RED BLOOD CELL COUNT DECREASED [None]
  - PLATELET COUNT DECREASED [None]
  - BETA-N-ACETYL-D-GLUCOSAMINIDASE INCREASED [None]
  - CREATININE RENAL CLEARANCE DECREASED [None]
